FAERS Safety Report 13208052 (Version 1)
Quarter: 2017Q1

REPORT INFORMATION
  Report Type: Spontaneous
  Country: DE (occurrence: DE)
  Receive Date: 20170209
  Receipt Date: 20170209
  Transmission Date: 20170428
  Serious: Yes (Other)
  Sender: FDA-Public Use
  Company Number: DE-TEVA-735296GER

PATIENT
  Sex: Female

DRUGS (1)
  1. FLUOXETINE [Suspect]
     Active Substance: FLUOXETINE HYDROCHLORIDE
     Dosage: THE SUSPECTED MEDICATION WAS TAKEN BY THE FATHER
     Route: 065

REACTIONS (3)
  - Exposure during pregnancy [Unknown]
  - Exposure via father [Unknown]
  - Abortion spontaneous [Unknown]
